FAERS Safety Report 5626267-X (Version None)
Quarter: 2008Q1

REPORT INFORMATION
  Report Type: 
  Country: None (occurrence: None)
  Receive Date: 20080213
  Receipt Date: 20080213
  Transmission Date: 20080703
  Serious: Yes (Other)
  Sender: FDA-Public Use
  Company Number: None

PATIENT
  Sex: Female
  Weight: 75.2971 kg

DRUGS (2)
  1. VYTORIN [Suspect]
     Indication: BLOOD CHOLESTEROL
     Dosage: 10 1 DAILY
     Dates: start: 20070101, end: 20080101
  2. ZETIA [Suspect]
     Indication: BLOOD CHOLESTEROL
     Dosage: 20 1 DAILY
     Dates: start: 20070101, end: 20080101

REACTIONS (2)
  - CHEST PAIN [None]
  - DYSPEPSIA [None]
